FAERS Safety Report 11401338 (Version 5)
Quarter: 2015Q3

REPORT INFORMATION
  Report Type: Report from Study
  Country: US (occurrence: US)
  Receive Date: 20150820
  Receipt Date: 20150918
  Transmission Date: 20151125
  Serious: Yes (Other)
  Sender: FDA-Public Use
  Company Number: US-B.I. PHARMACEUTICALS,INC./RIDGEFIELD-2015-BI-43892BP

PATIENT
  Age: 70 Year
  Sex: Male

DRUGS (1)
  1. OFEV [Suspect]
     Active Substance: NINTEDANIB
     Indication: PNEUMOCONIOSIS
     Dosage: 300 MG
     Route: 048
     Dates: start: 20150612, end: 20150914

REACTIONS (6)
  - Pulmonary oedema [Unknown]
  - Diarrhoea [Unknown]
  - Abdominal distension [Unknown]
  - Productive cough [Unknown]
  - Abdominal pain upper [Unknown]
  - Muscle spasms [Unknown]

NARRATIVE: CASE EVENT DATE: 20150621
